FAERS Safety Report 4507248-6 (Version None)
Quarter: 2004Q4

REPORT INFORMATION
  Report Type: 
  Country: None (occurrence: None)
  Receive Date: 20041112
  Receipt Date: 20041031
  Transmission Date: 20050328
  Serious: Yes (Hospitalization)
  Sender: FDA-Public Use
  Company Number: 2250051-2004-00460

PATIENT
  Age: 34 Year
  Sex: Female
  Weight: 83.9154 kg

DRUGS (1)
  1. RHOGAM [Suspect]
     Indication: POSTPARTUM STATE
     Dosage: 300 UG, IM
     Route: 030
     Dates: start: 20041029

REACTIONS (4)
  - LUNG INFILTRATION [None]
  - OBLITERATIVE BRONCHIOLITIS [None]
  - RESPIRATORY FAILURE [None]
  - VIRAL INFECTION [None]
